FAERS Safety Report 8223800-9 (Version None)
Quarter: 2012Q1

REPORT INFORMATION
  Report Type: 
  Country: None (occurrence: None)
  Receive Date: 20120321
  Receipt Date: 20120321
  Transmission Date: 20120608
  Serious: No
  Sender: FDA-Public Use
  Company Number: None

PATIENT
  Age: 73 Year
  Sex: Female
  Weight: 55.791 kg

DRUGS (5)
  1. AZITHROMYCIN [Suspect]
  2. CARVEDILOL [Concomitant]
     Route: 048
  3. COSOPT [Concomitant]
     Route: 047
  4. AZITHROMYCIN [Suspect]
     Indication: RESPIRATORY TRACT INFECTION BACTERIAL
     Dosage: 2 TABLETS
     Route: 048
     Dates: start: 20120313, end: 20120313
  5. XALATAN [Concomitant]
     Route: 047

REACTIONS (1)
  - DIPLOPIA [None]
